FAERS Safety Report 5526682-9 (Version None)
Quarter: 2007Q4

REPORT INFORMATION
  Report Type: 
  Country: None (occurrence: None)
  Receive Date: 20071127
  Receipt Date: 20071113
  Transmission Date: 20080405
  Serious: Yes (Other)
  Sender: FDA-Public Use
  Company Number: US-AMGEN-STX252487

PATIENT
  Sex: Male

DRUGS (2)
  1. ENBREL [Suspect]
     Indication: ANKYLOSING SPONDYLITIS
     Dates: start: 20070501, end: 20071001
  2. FISH OIL [Concomitant]
     Route: 065

REACTIONS (3)
  - HEPATIC ENZYME INCREASED [None]
  - HEPATITIS C POSITIVE [None]
  - TOOTH FRACTURE [None]
